FAERS Safety Report 7334917 (Version 4)
Quarter: 2012Q4

REPORT INFORMATION
  Report Type: 
  Country: US (occurrence: US)
  Receive Date: 20100329
  Receipt Date: 20120906
  Transmission Date: 20130627
  Serious: Yes (Death, Hospitalization, Other)
  Sender: FDA-Public Use
  Company Number: US-AMGEN-QUU400753

PATIENT
  Age: 53 Year
  Sex: Male

DRUGS (2)
  1. NPLATE [Suspect]
     Indication: IDIOPATHIC THROMBOCYTOPENIC PURPURA
     Dosage: UNK UNK, UNK
     Dates: start: 20091005
  2. CORTICOSTEROID NOS [Concomitant]

REACTIONS (10)
  - Hepatic failure [Fatal]
  - Hepatocellular carcinoma [Unknown]
  - Bone marrow failure [Unknown]
  - Pleural effusion [Unknown]
  - Device related sepsis [Recovering/Resolving]
  - Fall [Unknown]
  - Muscular weakness [Unknown]
  - Haemoptysis [Unknown]
  - Hypotension [Unknown]
  - Nausea [Unknown]
